FAERS Safety Report 4759511-1 (Version None)
Quarter: 2005Q3

REPORT INFORMATION
  Report Type: 
  Country: None (occurrence: None)
  Receive Date: 20050831
  Receipt Date: 20050823
  Transmission Date: 20060218
  Serious: Yes (Death)
  Sender: FDA-Public Use
  Company Number: 163-20785-05070291

PATIENT
  Age: 75 Year
  Sex: Male

DRUGS (10)
  1. THALOMID [Suspect]
     Indication: MYELODYSPLASTIC SYNDROME
     Dosage: 50 MG, DAILY, ORAL
     Route: 048
     Dates: start: 20040601, end: 20050609
  2. LIPITOR [Concomitant]
  3. PREDNISONE [Concomitant]
  4. COREG [Concomitant]
  5. PLAVIX [Concomitant]
  6. ZAROXOLYN [Concomitant]
  7. ALLOPURINOL [Concomitant]
  8. LASIX [Concomitant]
  9. ZYRTEC [Concomitant]
  10. ATARAX [Concomitant]

REACTIONS (1)
  - RESPIRATORY FAILURE [None]
